FAERS Safety Report 9846490 (Version 1)
Quarter: 2013Q4

REPORT INFORMATION
  Report Type: Spontaneous
  Country: US (occurrence: None)
  Receive Date: 20131223
  Receipt Date: 20131223
  Transmission Date: 20140711
  Serious: Yes (Other)
  Sender: FDA-Public Use
  Company Number: CABO-13003412

PATIENT
  Age: 71 Year
  Sex: Male
  Weight: 80.3 kg

DRUGS (3)
  1. COMETRIQ (CABOZANTINIB) CAPSULE [Suspect]
     Indication: THYROID CANCER
     Route: 048
     Dates: start: 20130909, end: 20131008
  2. LISINOPRIL (LISINOPRIL DIHYDRATE) (UNKNOWN [Concomitant]
  3. LISINOPRIL (LISINOPRIL DIHYDRATE) (UNKNOWN [Concomitant]

REACTIONS (5)
  - Musculoskeletal pain [None]
  - Blood pressure increased [None]
  - Glossodynia [None]
  - Dysphonia [None]
  - Muscular weakness [None]
